FAERS Safety Report 4867317-8 (Version None)
Quarter: 2005Q4

REPORT INFORMATION
  Report Type: 
  Country: None (occurrence: None)
  Receive Date: 20051228
  Receipt Date: 20051217
  Transmission Date: 20060501
  Serious: Yes (Other)
  Sender: FDA-Public Use
  Company Number: BR-ROCHE-429200

PATIENT
  Age: 54 Year
  Sex: Female

DRUGS (2)
  1. XELODA [Suspect]
     Route: 048
     Dates: start: 20050815, end: 20051107
  2. XELODA [Suspect]
     Dosage: DOSAGE WAS REDUCED TO 3 WEEKS OF TREATMENT AND 3 WEEKS OF INTERRUPTION.
     Route: 048

REACTIONS (9)
  - ABDOMINAL PAIN [None]
  - ANOREXIA [None]
  - DIARRHOEA [None]
  - DRY MOUTH [None]
  - ERUCTATION [None]
  - MUCOSAL INFLAMMATION [None]
  - PALMAR-PLANTAR ERYTHRODYSAESTHESIA SYNDROME [None]
  - RECTAL STENOSIS [None]
  - SALIVARY HYPERSECRETION [None]
